FAERS Safety Report 6519557-X (Version None)
Quarter: 2009Q4

REPORT INFORMATION
  Report Type: 
  Country: None (occurrence: None)
  Receive Date: 20091228
  Receipt Date: 20091221
  Transmission Date: 20100525
  Serious: Yes (Hospitalization)
  Sender: FDA-Public Use
  Company Number: US-B.I. PHARMACEUTICALS,INC./RIDGEFIELD-2009-BP-14737BP

PATIENT
  Sex: Female

DRUGS (2)
  1. COMBIVENT [Suspect]
     Indication: CHRONIC OBSTRUCTIVE PULMONARY DISEASE
     Route: 055
  2. PROAIR HFA [Concomitant]

REACTIONS (4)
  - AMPHETAMINES POSITIVE [None]
  - DEPRESSION [None]
  - POSTPARTUM HAEMORRHAGE [None]
  - SINUS CONGESTION [None]
